FAERS Safety Report 9235087 (Version 2)
Quarter: 2013Q2

REPORT INFORMATION
  Report Type: Report from Study
  Country: US (occurrence: US)
  Receive Date: 20130416
  Receipt Date: 20130425
  Transmission Date: 20140414
  Serious: Yes (Hospitalization)
  Sender: FDA-Public Use
  Company Number: US-AMGEN-USACT2013025913

PATIENT
  Age: 87 Year
  Sex: Male

DRUGS (16)
  1. DENOSUMAB [Suspect]
     Indication: PROSTATE CANCER
     Dosage: 1.7 ML, QMO
     Route: 058
     Dates: start: 20110114
  2. SENSIPAR [Concomitant]
     Dosage: 30 MG, UNK
     Route: 048
  3. CARVEDILOL [Concomitant]
     Dosage: 25 MG, BID
     Route: 048
     Dates: start: 20100420
  4. FUROSEMIDE [Concomitant]
     Dosage: 20 MG, UNK
     Route: 048
     Dates: start: 20130313
  5. COUMADIN [Concomitant]
     Dosage: 5 MG, UNK
     Route: 048
     Dates: start: 20121119
  6. ZOLPIDEM [Concomitant]
     Dosage: 5 MG, AS NECESSARY
  7. IRON [Concomitant]
     Dosage: 325 MG, BID
  8. NIFEDIAC CC [Concomitant]
     Dosage: 60 MG, BID
     Route: 048
  9. JANUVIA [Concomitant]
     Dosage: 50 MG, UNK
     Route: 048
  10. GLIMEPIRIDE [Concomitant]
     Dosage: 1 MG, UNK
     Route: 048
  11. ASPIRIN [Concomitant]
     Dosage: 81 MG, UNK
     Route: 048
  12. TRAMADOL [Concomitant]
     Dosage: 50 MG, AS NECESSARY
     Route: 048
  13. CALCIUM 600 [Concomitant]
     Route: 048
  14. VITAMIN D [Concomitant]
     Dosage: 1.25 MG, UNK
  15. STOOL SOFTENER [Concomitant]
     Dosage: UNK UNK, BID
  16. ANALGESICS [Concomitant]

REACTIONS (2)
  - Dehydration [Recovered/Resolved]
  - Gait disturbance [Recovered/Resolved]
